FAERS Safety Report 9410251 (Version 2)
Quarter: 2014Q1

REPORT INFORMATION
  Report Type: Spontaneous
  Country: JP (occurrence: JP)
  Receive Date: 20130719
  Receipt Date: 20140319
  Transmission Date: 20141002
  Serious: Yes (Other)
  Sender: FDA-Public Use
  Company Number: JP-ROCHE-1248299

PATIENT
  Age: 40 Year
  Sex: Male

DRUGS (2)
  1. AVASTIN [Suspect]
     Indication: RETINOPATHY
     Dosage: DOSAGE IS UNCERTAIN.
     Route: 031
     Dates: start: 20130704, end: 20130704
  2. AVASTIN [Suspect]
     Indication: OFF LABEL USE

REACTIONS (5)
  - Pyrexia [Recovering/Resolving]
  - Aspiration [Unknown]
  - Chest X-ray abnormal [Unknown]
  - Pulmonary alveolar haemorrhage [Unknown]
  - Anaemia [Unknown]
